FAERS Safety Report 8566026 (Version 3)
Quarter: 2013Q1

REPORT INFORMATION
  Report Type: Report from Study
  Country: DE (occurrence: DE)
  Receive Date: 20120516
  Receipt Date: 20130325
  Transmission Date: 20140127
  Serious: Yes (Hospitalization)
  Sender: FDA-Public Use
  Company Number: DE-BIOGENIDEC-2012BI016963

PATIENT
  Age: 30 Year
  Sex: Male

DRUGS (2)
  1. TYSABRI [Suspect]
     Indication: RELAPSING-REMITTING MULTIPLE SCLEROSIS
     Route: 042
     Dates: start: 20111123
  2. TOLPERISON [Concomitant]
     Indication: MUSCLE SPASTICITY
     Route: 048
     Dates: start: 20120321

REACTIONS (1)
  - Appendicitis perforated [Recovered/Resolved]
